FAERS Safety Report 24233786 (Version 1)
Quarter: 2024Q3

REPORT INFORMATION
  Report Type: Spontaneous
  Country: US (occurrence: US)
  Receive Date: 20240821
  Receipt Date: 20240821
  Transmission Date: 20241016
  Serious: No
  Sender: SANOFI AVENTIS
  Company Number: US-SANOFI-02176315

PATIENT
  Sex: Female

DRUGS (1)
  1. DUPIXENT [Suspect]
     Active Substance: DUPILUMAB
     Indication: Dermatitis atopic
     Dosage: 300 MG QOW AND DRUG TREATMENT DURATION:~ 1 YEAR
     Dates: start: 2017, end: 2018

REACTIONS (4)
  - Cheilitis [Recovered/Resolved]
  - Chapped lips [Recovered/Resolved]
  - Lip blister [Recovered/Resolved]
  - Dermatitis atopic [Unknown]
